FAERS Safety Report 22611634 (Version 1)
Quarter: 2023Q2

REPORT INFORMATION
  Report Type: Spontaneous
  Country: US (occurrence: US)
  Receive Date: 20230616
  Receipt Date: 20230616
  Transmission Date: 20230721
  Serious: Yes (Other)
  Sender: FDA-Public Use
  Company Number: US-BRISTOL-MYERS SQUIBB COMPANY-2023-083503

PATIENT
  Age: 65 Year
  Sex: Female
  Weight: 65.77 kg

DRUGS (2)
  1. ABECMA [Suspect]
     Active Substance: IDECABTAGENE VICLEUCEL
     Indication: Plasma cell myeloma
  2. ATOVAQUONE [Concomitant]
     Active Substance: ATOVAQUONE
     Indication: Pneumonia

REACTIONS (1)
  - Plasma cell myeloma recurrent [Unknown]
